FAERS Safety Report 6109426-1 (Version None)
Quarter: 2009Q1

REPORT INFORMATION
  Report Type: 
  Country: None (occurrence: None)
  Receive Date: 20090310
  Receipt Date: 20090305
  Transmission Date: 20090719
  Serious: Yes (Hospitalization)
  Sender: FDA-Public Use
  Company Number: B0563545A

PATIENT
  Age: 62 Year
  Sex: Male

DRUGS (3)
  1. CLAMOXYL [Suspect]
     Indication: LISTERIOSIS
     Dosage: 12G PER DAY
     Route: 065
     Dates: start: 20090201
  2. RADIOTHERAPY [Suspect]
     Indication: GLIOBLASTOMA
     Route: 065
     Dates: start: 20090101
  3. TEMODAL [Concomitant]
     Indication: GLIOBLASTOMA
     Route: 065
     Dates: start: 20090101

REACTIONS (3)
  - DISORIENTATION [None]
  - DRUG INTERACTION [None]
  - SOMNOLENCE [None]
